FAERS Safety Report 25107676 (Version 1)
Quarter: 2025Q1

REPORT INFORMATION
  Report Type: Spontaneous
  Country: HR (occurrence: HR)
  Receive Date: 20250322
  Receipt Date: 20250322
  Transmission Date: 20250409
  Serious: Yes (Other)
  Sender: MERCK SHARP & DOHME LLC
  Company Number: HR-009507513-2266001

PATIENT
  Age: 45 Year
  Sex: Female

DRUGS (4)
  1. KEYTRUDA [Suspect]
     Active Substance: PEMBROLIZUMAB
     Indication: Triple negative breast cancer
     Route: 065
     Dates: start: 202402, end: 202411
  2. TAXOTERE [Suspect]
     Active Substance: DOCETAXEL
     Indication: Triple negative breast cancer
     Route: 065
     Dates: start: 202402, end: 2024
  3. CYTOXAN [Suspect]
     Active Substance: CYCLOPHOSPHAMIDE
     Indication: Triple negative breast cancer
     Route: 065
     Dates: start: 202402, end: 202407
  4. DOXORUBICIN [Suspect]
     Active Substance: DOXORUBICIN
     Indication: Triple negative breast cancer
     Route: 065
     Dates: start: 2024, end: 202407

REACTIONS (2)
  - Hepatotoxicity [Unknown]
  - Malignant neoplasm progression [Unknown]

NARRATIVE: CASE EVENT DATE: 20240101
